FAERS Safety Report 7388077-5 (Version None)
Quarter: 2011Q2

REPORT INFORMATION
  Report Type: 
  Country: None (occurrence: None)
  Receive Date: 20110401
  Receipt Date: 20110330
  Transmission Date: 20111010
  Serious: No
  Sender: FDA-Public Use
  Company Number: US-PFIZER INC-2011071553

PATIENT
  Sex: Female
  Weight: 90.7 kg

DRUGS (8)
  1. PRISTIQ [Suspect]
     Indication: ANXIETY
     Dosage: 50 MG
     Route: 048
     Dates: start: 20110120
  2. ALLEGRA [Concomitant]
     Indication: HYPERSENSITIVITY
     Dosage: UNK
  3. BENAZEPRIL [Concomitant]
     Indication: HYPERTENSION
     Dosage: UNK
  4. PREDNISONE [Concomitant]
     Indication: BRONCHOSPASM
  5. NASONEX [Concomitant]
     Indication: BRONCHOSPASM
  6. NASONEX [Concomitant]
     Indication: HYPERSENSITIVITY
     Dosage: UNK
  7. PREDNISONE [Concomitant]
     Indication: HYPERSENSITIVITY
     Dosage: UNK
  8. ADVICOR [Concomitant]
     Indication: BLOOD CHOLESTEROL INCREASED
     Dosage: UNK

REACTIONS (1)
  - MEDICATION RESIDUE [None]
